FAERS Safety Report 9171016 (Version 2)
Quarter: 2013Q2

REPORT INFORMATION
  Report Type: Report from Study
  Country: DE (occurrence: DE)
  Receive Date: 20130319
  Receipt Date: 20130429
  Transmission Date: 20140414
  Serious: Yes (Other)
  Sender: FDA-Public Use
  Company Number: DE-ASTELLAS-2013US002846

PATIENT
  Age: 81 Year
  Sex: Male
  Weight: 74 kg

DRUGS (2)
  1. BLINDED ENZALUTAMIDE [Suspect]
     Indication: PROSTATE CANCER METASTATIC
     Dosage: UID/QD
     Route: 048
     Dates: start: 20121030, end: 20130309
  2. BLINDED ENZALUTAMIDE [Suspect]
     Dosage: UID/QD
     Route: 048
     Dates: start: 20130326

REACTIONS (1)
  - Ventricular tachyarrhythmia [Not Recovered/Not Resolved]
